FAERS Safety Report 5527067-1 (Version None)
Quarter: 2007Q4

REPORT INFORMATION
  Report Type: 
  Country: None (occurrence: None)
  Receive Date: 20071127
  Receipt Date: 20071122
  Transmission Date: 20080405
  Serious: Yes (Other)
  Sender: FDA-Public Use
  Company Number: GB-MERCK-0711GBR00100

PATIENT
  Age: 62 Year
  Sex: Female

DRUGS (4)
  1. ZOCOR [Suspect]
     Indication: BLOOD CHOLESTEROL INCREASED
     Route: 048
     Dates: start: 20071017, end: 20071108
  2. CETIRIZINE HYDROCHLORIDE [Concomitant]
     Route: 048
     Dates: start: 20070917
  3. ACETAMINOPHEN AND PROPOXYPHENE HYDROCHLORIDE [Concomitant]
     Indication: PAIN MANAGEMENT
     Route: 048
     Dates: start: 19910101
  4. LANSOPRAZOLE [Concomitant]
     Indication: GASTROOESOPHAGEAL REFLUX DISEASE
     Route: 048
     Dates: start: 20070605

REACTIONS (2)
  - INSOMNIA [None]
  - NIGHTMARE [None]
